FAERS Safety Report 5887754-2 (Version None)
Quarter: 2008Q3

REPORT INFORMATION
  Report Type: 
  Country: None (occurrence: None)
  Receive Date: 20080917
  Receipt Date: 20080917
  Transmission Date: 20090109
  Serious: No
  Sender: FDA-Public Use
  Company Number: None

PATIENT
  Sex: Female
  Weight: 117.9352 kg

DRUGS (2)
  1. CARVEDILOL [Suspect]
     Indication: DRUG INEFFECTIVE
     Dosage: 25 MG BID PO
     Route: 048
     Dates: start: 20080801
  2. CARVEDILOL [Suspect]
     Indication: TREATMENT FAILURE
     Dosage: 25 MG BID PO
     Route: 048
     Dates: start: 20080801

REACTIONS (2)
  - BLOOD PRESSURE INADEQUATELY CONTROLLED [None]
  - TREATMENT FAILURE [None]
